FAERS Safety Report 23782944 (Version 2)
Quarter: 2025Q2

REPORT INFORMATION
  Report Type: Spontaneous
  Country: US (occurrence: US)
  Receive Date: 20240425
  Receipt Date: 20250516
  Transmission Date: 20250717
  Serious: No
  Sender: NOVEN
  Company Number: US-NOVEN PHARMACEUTICALS, INC.-2024-NOV-US000307

PATIENT
  Age: 22 Year
  Sex: Female

DRUGS (1)
  1. DAYTRANA [Suspect]
     Active Substance: METHYLPHENIDATE
     Indication: Attention deficit hyperactivity disorder
     Dates: start: 20240316, end: 20240316

REACTIONS (3)
  - Application site erythema [Recovered/Resolved]
  - Application site irritation [Not Recovered/Not Resolved]
  - Application site bruise [Not Recovered/Not Resolved]

NARRATIVE: CASE EVENT DATE: 20240316
